FAERS Safety Report 17737142 (Version 1)
Quarter: 2020Q2

REPORT INFORMATION
  Report Type: Spontaneous
  Country: IT (occurrence: IT)
  Receive Date: 20200502
  Receipt Date: 20200502
  Transmission Date: 20200714
  Serious: Yes (Other)
  Sender: FDA-Public Use
  Company Number: IT-TEVA-2020-IT-1229333

PATIENT
  Age: 73 Year
  Sex: Male
  Weight: 58 kg

DRUGS (2)
  1. FLUOROURACILE TEVA 5 G/100 ML SOLUZIONE PER INFUSIONE [Suspect]
     Active Substance: FLUOROURACIL
     Indication: ADENOCARCINOMA OF COLON
     Dosage: 4000 MG ONE CYCLICAL
     Route: 042
     Dates: start: 20191227, end: 20200417
  2. OXALIPLATINO SUN 5 MG/ML CONCENTRATO PER SOLUZIONE PER INFUSIONE [Suspect]
     Active Substance: OXALIPLATIN
     Indication: ADENOCARCINOMA OF COLON
     Dosage: 140 MG
     Route: 042
     Dates: start: 20191227, end: 20200417

REACTIONS (3)
  - Diarrhoea [Unknown]
  - Constipation [Unknown]
  - Abdominal pain [Unknown]

NARRATIVE: CASE EVENT DATE: 20200318
